FAERS Safety Report 6928392-X (Version None)
Quarter: 2010Q3

REPORT INFORMATION
  Report Type: 
  Country: None (occurrence: None)
  Receive Date: 20100810
  Receipt Date: 20100726
  Transmission Date: 20110219
  Serious: Yes (Hospitalization)
  Sender: FDA-Public Use
  Company Number: 2010AC000069

PATIENT
  Age: 79 Year
  Sex: Male

DRUGS (12)
  1. DIGOXIN [Suspect]
     Dosage: 0.250 MG;QD;PO
     Route: 048
     Dates: start: 20080328
  2. PREDNISONE [Concomitant]
  3. LISINOPRIL [Concomitant]
  4. LASIX [Concomitant]
  5. COREG [Concomitant]
  6. ASPIRIN [Concomitant]
  7. NIFEDICAL [Concomitant]
  8. POTASSIUM CHLORIDE [Concomitant]
  9. COUMADIN [Concomitant]
  10. SPIRONOLACTONE [Concomitant]
  11. SINEMET [Concomitant]
  12. MIRAPEX [Concomitant]

REACTIONS (35)
  - ABDOMINAL PAIN UPPER [None]
  - AORTIC ANEURYSM [None]
  - ATELECTASIS [None]
  - BLOOD CREATININE INCREASED [None]
  - BLOOD UREA INCREASED [None]
  - CARDIAC ENZYMES INCREASED [None]
  - CARDIAC MURMUR [None]
  - CARDIOACTIVE DRUG LEVEL INCREASED [None]
  - CHEST PAIN [None]
  - COGNITIVE DISORDER [None]
  - DIVERTICULUM [None]
  - DRUG LEVEL BELOW THERAPEUTIC [None]
  - DYSPNOEA [None]
  - ECONOMIC PROBLEM [None]
  - FATIGUE [None]
  - FEELING ABNORMAL [None]
  - HEART INJURY [None]
  - INCISION SITE HAEMATOMA [None]
  - INCISION SITE INFECTION [None]
  - INCISION SITE PAIN [None]
  - INTERVERTEBRAL DISC PROTRUSION [None]
  - MULTIPLE INJURIES [None]
  - OEDEMA [None]
  - PARKINSON'S DISEASE [None]
  - PARTNER STRESS [None]
  - PERICARDIAL EFFUSION [None]
  - PROCEDURAL SITE REACTION [None]
  - PRODUCT SUBSTITUTION ISSUE [None]
  - PROSTATOMEGALY [None]
  - RED BLOOD CELL SEDIMENTATION RATE INCREASED [None]
  - RENAL CYST [None]
  - SENSATION OF HEAVINESS [None]
  - TENDERNESS [None]
  - UNEVALUABLE EVENT [None]
  - WHITE BLOOD CELL COUNT INCREASED [None]
